FAERS Safety Report 25216334 (Version 2)
Quarter: 2025Q2

REPORT INFORMATION
  Report Type: Report from Study
  Country: US (occurrence: US)
  Receive Date: 20250418
  Receipt Date: 20250623
  Transmission Date: 20250716
  Serious: Yes (Hospitalization, Other)
  Sender: GILEAD
  Company Number: US-GILEAD-2025-0710273

PATIENT
  Age: 40 Year
  Sex: Female

DRUGS (11)
  1. AZTREONAM LYSINE [Suspect]
     Active Substance: AZTREONAM LYSINE
     Indication: Cystic fibrosis
     Dosage: INHALE 1 VIAL (75 MG) VIA ALTERA NEBULIZER THREE TIMES DAILY FOR 28 DAYS ON AND 28 DAYS OFF
     Route: 055
  2. AZTREONAM LYSINE [Suspect]
     Active Substance: AZTREONAM LYSINE
     Route: 055
  3. IBUPROFEN [Concomitant]
     Active Substance: IBUPROFEN
  4. ALPRAZOLAM [Concomitant]
     Active Substance: ALPRAZOLAM
  5. TYLENOL [Concomitant]
     Active Substance: ACETAMINOPHEN
  6. METFORMIN [Concomitant]
     Active Substance: METFORMIN HYDROCHLORIDE
  7. VITAMIN D NOS [Concomitant]
     Active Substance: CHOLECALCIFEROL\ERGOCALCIFEROL
  8. AZITHROMYCIN [Concomitant]
     Active Substance: AZITHROMYCIN
  9. PULMOZYME [Concomitant]
     Active Substance: DORNASE ALFA
  10. MINERALS\VITAMINS [Concomitant]
     Active Substance: MINERALS\VITAMINS
  11. PROAIR HFA [Concomitant]
     Active Substance: ALBUTEROL SULFATE

REACTIONS (2)
  - Nasopharyngitis [Unknown]
  - Cystic fibrosis [Unknown]

NARRATIVE: CASE EVENT DATE: 20250301
